FAERS Safety Report 8973024 (Version 1)
Quarter: 2012Q4

REPORT INFORMATION
  Report Type: 
  Country: JP (occurrence: JP)
  Receive Date: 20121219
  Receipt Date: 20121219
  Transmission Date: 20130627
  Serious: Yes (Other)
  Sender: FDA-Public Use
  Company Number: JP-ASTELLAS-2012JP011801

PATIENT
  Age: 4 Month
  Sex: Male

DRUGS (9)
  1. PROGRAF [Suspect]
     Indication: PROPHYLAXIS AGAINST GRAFT VERSUS HOST DISEASE
     Dosage: UNK
     Route: 065
  2. PROGRAF [Suspect]
     Dosage: UNK
     Route: 065
  3. PROGRAF [Suspect]
     Dosage: UNK
     Route: 065
  4. METHOTREXATE [Concomitant]
     Indication: PROPHYLAXIS AGAINST GRAFT VERSUS HOST DISEASE
     Dosage: UNK
     Route: 065
  5. METHOTREXATE [Concomitant]
     Dosage: UNK
     Route: 065
  6. METHOTREXATE [Concomitant]
     Dosage: UNK
     Route: 065
  7. BUSULFAN [Concomitant]
     Indication: STEM CELL TRANSPLANT
     Route: 065
  8. FLUDARABINE [Concomitant]
     Indication: STEM CELL TRANSPLANT
     Route: 065
  9. L-PHENYLALANINE [Concomitant]
     Indication: STEM CELL TRANSPLANT
     Route: 065

REACTIONS (3)
  - Drug ineffective [Unknown]
  - Acute graft versus host disease [Unknown]
  - Chronic graft versus host disease [Not Recovered/Not Resolved]
